FAERS Safety Report 21406391 (Version 2)
Quarter: 2022Q4

REPORT INFORMATION
  Report Type: Spontaneous
  Country: US (occurrence: US)
  Receive Date: 20221004
  Receipt Date: 20221214
  Transmission Date: 20230112
  Serious: No
  Sender: FDA-Public Use
  Company Number: US-TAKEDA-2022TUS067470

PATIENT
  Sex: Female

DRUGS (3)
  1. LEUPROLIDE ACETATE [Suspect]
     Active Substance: LEUPROLIDE ACETATE
     Indication: Ovarian granulosa cell tumour
     Dosage: 3.75 MILLIGRAM, Q4WEEKS
     Route: 030
  2. EXEMESTANE [Concomitant]
     Active Substance: EXEMESTANE
     Indication: Ovarian granulosa cell tumour
     Dosage: 25 MILLIGRAM, QD
     Route: 048
  3. BICALUTAMIDE [Concomitant]
     Active Substance: BICALUTAMIDE
     Indication: Ovarian granulosa cell tumour
     Dosage: 50 MILLIGRAM, QD
     Route: 048

REACTIONS (2)
  - Off label use [Unknown]
  - No adverse event [Unknown]
